FAERS Safety Report 6701732-2 (Version None)
Quarter: 2010Q2

REPORT INFORMATION
  Report Type: 
  Country: None (occurrence: None)
  Receive Date: 20100429
  Receipt Date: 20100420
  Transmission Date: 20101027
  Serious: Yes (Hospitalization, Other)
  Sender: FDA-Public Use
  Company Number: PHHY2009CA49225

PATIENT
  Sex: Male

DRUGS (1)
  1. SANDOSTATIN LAR [Suspect]
     Indication: CARCINOID SYNDROME
     Dosage: 30 MG EVERY 4 WEEKS
     Route: 030
     Dates: start: 20081231

REACTIONS (6)
  - CARDIAC DISORDER [None]
  - CARDIAC OPERATION [None]
  - MITRAL VALVE REPLACEMENT [None]
  - NASOPHARYNGITIS [None]
  - SWELLING [None]
  - TRICUSPID VALVE REPLACEMENT [None]
